FAERS Safety Report 20705391 (Version 3)
Quarter: 2022Q3

REPORT INFORMATION
  Report Type: Spontaneous
  Country: US (occurrence: US)
  Receive Date: 20220413
  Receipt Date: 20220819
  Transmission Date: 20221026
  Serious: Yes (Other)
  Sender: FDA-Public Use
  Company Number: US-ELI_LILLY_AND_COMPANY-US202204002642

PATIENT
  Sex: Male

DRUGS (20)
  1. BASAGLAR [Suspect]
     Active Substance: INSULIN GLARGINE
     Indication: Type 2 diabetes mellitus
     Dosage: 14 U, EACH MORNING
     Route: 065
     Dates: start: 2020
  2. BASAGLAR [Suspect]
     Active Substance: INSULIN GLARGINE
     Indication: Type 2 diabetes mellitus
     Dosage: 14 U, EACH MORNING
     Route: 065
     Dates: start: 2020
  3. BASAGLAR [Suspect]
     Active Substance: INSULIN GLARGINE
     Indication: Type 2 diabetes mellitus
     Dosage: 14 U, EACH MORNING
     Route: 065
     Dates: start: 2020
  4. BASAGLAR [Suspect]
     Active Substance: INSULIN GLARGINE
     Indication: Type 2 diabetes mellitus
     Dosage: 14 U, EACH MORNING
     Route: 065
     Dates: start: 2020
  5. BASAGLAR [Suspect]
     Active Substance: INSULIN GLARGINE
     Dosage: 28 U, EACH EVENING(AT NIGHT)
     Route: 065
     Dates: start: 2020
  6. BASAGLAR [Suspect]
     Active Substance: INSULIN GLARGINE
     Dosage: 28 U, EACH EVENING(AT NIGHT)
     Route: 065
     Dates: start: 2020
  7. BASAGLAR [Suspect]
     Active Substance: INSULIN GLARGINE
     Dosage: 28 U, EACH EVENING(AT NIGHT)
     Route: 065
     Dates: start: 2020
  8. BASAGLAR [Suspect]
     Active Substance: INSULIN GLARGINE
     Dosage: 28 U, EACH EVENING(AT NIGHT)
     Route: 065
     Dates: start: 2020
  9. BASAGLAR [Suspect]
     Active Substance: INSULIN GLARGINE
     Dosage: 14 U, EACH MORNING
     Route: 065
  10. BASAGLAR [Suspect]
     Active Substance: INSULIN GLARGINE
     Dosage: 14 U, EACH MORNING
     Route: 065
  11. BASAGLAR [Suspect]
     Active Substance: INSULIN GLARGINE
     Dosage: 28 U, EACH EVENING(AT NIGHT)
     Route: 065
  12. BASAGLAR [Suspect]
     Active Substance: INSULIN GLARGINE
     Dosage: 28 U, EACH EVENING(AT NIGHT)
     Route: 065
  13. BASAGLAR [Suspect]
     Active Substance: INSULIN GLARGINE
     Dosage: UNK UNK, UNKNOWN
     Route: 065
  14. BASAGLAR [Suspect]
     Active Substance: INSULIN GLARGINE
     Dosage: UNK UNK, UNKNOWN
     Route: 065
  15. BASAGLAR [Suspect]
     Active Substance: INSULIN GLARGINE
     Dosage: UNK UNK, UNKNOWN
     Route: 065
  16. BASAGLAR [Suspect]
     Active Substance: INSULIN GLARGINE
     Dosage: UNK UNK, UNKNOWN
     Route: 065
  17. BASAGLAR [Suspect]
     Active Substance: INSULIN GLARGINE
     Dosage: UNK UNK, UNKNOWN
     Route: 065
  18. BASAGLAR [Suspect]
     Active Substance: INSULIN GLARGINE
     Dosage: UNK UNK, UNKNOWN
     Route: 065
  19. BASAGLAR [Suspect]
     Active Substance: INSULIN GLARGINE
     Dosage: UNK UNK, UNKNOWN
     Route: 065
  20. TRULICITY [Suspect]
     Active Substance: DULAGLUTIDE
     Indication: Type 2 diabetes mellitus
     Dosage: 0.75 MG, UNKNOWN
     Route: 065

REACTIONS (7)
  - Visual impairment [Unknown]
  - Diabetic retinopathy [Unknown]
  - Cataract [Unknown]
  - Blood glucose increased [Unknown]
  - Blood glucose increased [Unknown]
  - Incorrect dose administered [Unknown]
  - Inappropriate schedule of product administration [Unknown]

NARRATIVE: CASE EVENT DATE: 20200101
